FAERS Safety Report 7240725-6 (Version None)
Quarter: 2011Q1

REPORT INFORMATION
  Report Type: 
  Country: None (occurrence: None)
  Receive Date: 20110124
  Receipt Date: 20101013
  Transmission Date: 20110831
  Serious: No
  Sender: FDA-Public Use
  Company Number: US-KINGPHARMUSA00001-K201001292

PATIENT
  Sex: Female

DRUGS (8)
  1. HYDROCODONE [Concomitant]
     Dosage: UNK
  2. EPIPEN [Suspect]
     Indication: HYPERSENSITIVITY
     Dosage: 0.3 MG, SINGLE
     Route: 030
     Dates: start: 20101012, end: 20101012
  3. BENADRYL [Concomitant]
     Dosage: UNK
  4. FLUCONAZOLE [Concomitant]
     Dosage: UNK
  5. EPIPEN [Suspect]
     Indication: ANAPHYLACTIC REACTION
  6. HYDROCHLOROTHIAZIDE [Concomitant]
     Dosage: UNK
  7. POTASSIUM [Concomitant]
     Dosage: UNK
  8. CIPROFLOXACIN [Concomitant]
     Dosage: UNK

REACTIONS (2)
  - DRUG INEFFECTIVE [None]
  - INJECTION SITE HAEMATOMA [None]
